FAERS Safety Report 25126981 (Version 2)
Quarter: 2025Q2

REPORT INFORMATION
  Report Type: Spontaneous
  Country: US (occurrence: US)
  Receive Date: 20250327
  Receipt Date: 20250618
  Transmission Date: 20250716
  Serious: No
  Sender: UCB
  Company Number: US-UCBSA-2025006417

PATIENT
  Age: 42 Year
  Sex: Male

DRUGS (2)
  1. BIMZELX [Suspect]
     Active Substance: BIMEKIZUMAB-BKZX
     Indication: Psoriasis
     Dosage: 320 MILLIGRAM, EV 4 WEEKS
     Route: 058
     Dates: start: 202402
  2. BIMZELX [Suspect]
     Active Substance: BIMEKIZUMAB-BKZX
     Dosage: 320 MILLIGRAM, EV 8 WEEKS
     Route: 058

REACTIONS (8)
  - Ear pain [Recovering/Resolving]
  - Psoriasis [Unknown]
  - Acne [Unknown]
  - Dry skin [Unknown]
  - Stomatitis [Unknown]
  - Pain [Unknown]
  - Dry mouth [Unknown]
  - Taste disorder [Unknown]

NARRATIVE: CASE EVENT DATE: 20250301
